FAERS Safety Report 24058338 (Version 1)
Quarter: 2024Q3

REPORT INFORMATION
  Report Type: Spontaneous
  Country: CN (occurrence: CN)
  Receive Date: 20240708
  Receipt Date: 20240708
  Transmission Date: 20241016
  Serious: Yes (Disabling)
  Sender: TEVA
  Company Number: CN-TEVA-VS-3216599

PATIENT
  Age: 57 Year
  Sex: Male
  Weight: 56.7 kg

DRUGS (10)
  1. BENDAMUSTINE HYDROCHLORIDE [Suspect]
     Active Substance: BENDAMUSTINE HYDROCHLORIDE
     Indication: Diffuse large B-cell lymphoma recurrent
     Route: 041
     Dates: start: 20240412, end: 20240413
  2. RITUXIMAB [Suspect]
     Active Substance: RITUXIMAB
     Indication: Diffuse large B-cell lymphoma recurrent
     Route: 041
     Dates: start: 20240412, end: 20240412
  3. RITUXIMAB [Suspect]
     Active Substance: RITUXIMAB
     Indication: Diffuse large B-cell lymphoma recurrent
     Route: 041
     Dates: start: 20240412, end: 20240412
  4. ETOPOSIDE [Suspect]
     Active Substance: ETOPOSIDE
     Indication: Diffuse large B-cell lymphoma recurrent
     Route: 041
     Dates: start: 20240414, end: 20240416
  5. CYTARABINE [Suspect]
     Active Substance: CYTARABINE
     Indication: Diffuse large B-cell lymphoma recurrent
     Route: 041
     Dates: start: 20240414, end: 20240417
  6. SODIUM CHLORIDE [Concomitant]
     Active Substance: SODIUM CHLORIDE
     Indication: Diffuse large B-cell lymphoma recurrent
     Route: 041
     Dates: start: 20240412, end: 20240413
  7. SODIUM CHLORIDE [Concomitant]
     Active Substance: SODIUM CHLORIDE
     Indication: Diffuse large B-cell lymphoma recurrent
     Route: 041
     Dates: start: 20240412, end: 20240412
  8. SODIUM CHLORIDE [Concomitant]
     Active Substance: SODIUM CHLORIDE
     Indication: Diffuse large B-cell lymphoma recurrent
     Route: 041
     Dates: start: 20240412, end: 20240412
  9. SODIUM CHLORIDE [Concomitant]
     Active Substance: SODIUM CHLORIDE
     Indication: Diffuse large B-cell lymphoma recurrent
     Route: 041
     Dates: start: 20240414, end: 20240416
  10. SODIUM CHLORIDE [Concomitant]
     Active Substance: SODIUM CHLORIDE
     Indication: Diffuse large B-cell lymphoma recurrent
     Route: 041
     Dates: start: 20240414, end: 20240417

REACTIONS (3)
  - White blood cell count decreased [Unknown]
  - Granulocyte count decreased [Unknown]
  - Platelet count decreased [Unknown]

NARRATIVE: CASE EVENT DATE: 20240421
